FAERS Safety Report 13941826 (Version 6)
Quarter: 2018Q2

REPORT INFORMATION
  Report Type: Report from Study
  Country: DE (occurrence: DE)
  Receive Date: 20170906
  Receipt Date: 20180611
  Transmission Date: 20180711
  Serious: Yes (Other)
  Sender: FDA-Public Use
  Company Number: PHHY2017DE131555

PATIENT
  Age: 52 Year
  Sex: Female

DRUGS (20)
  1. HYDROCORTISONE. [Concomitant]
     Active Substance: HYDROCORTISONE
     Indication: HYPOPITUITARISM
     Dosage: UNK
     Route: 048
     Dates: start: 20150309, end: 20160405
  2. FAMENITA [Concomitant]
     Active Substance: PROGESTERONE
     Indication: MENORRHAGIA
     Dosage: 200 MG, (12 DAYS PER MONTH)
     Route: 065
     Dates: start: 201509
  3. L-THYROX JOD HEXAL [Concomitant]
     Indication: HYPOPITUITARISM
     Dosage: 150 MG, UNK (50/150 MG)
     Route: 065
     Dates: start: 20150309
  4. BISOPROLOL [Concomitant]
     Active Substance: BISOPROLOL
     Indication: HYPERTENSION
     Dosage: 5 MG, QD
     Route: 065
     Dates: start: 1982
  5. CALCIUM [Concomitant]
     Active Substance: CALCIUM
     Indication: OSTEOPENIA
     Dosage: 500 MG, BID
     Route: 065
     Dates: start: 20150826, end: 20160315
  6. SIGNIFOR [Suspect]
     Active Substance: PASIREOTIDE
     Indication: PITUITARY-DEPENDENT CUSHING^S SYNDROME
     Dosage: UNK
     Route: 058
     Dates: start: 20160322
  7. RAMIPRIL. [Concomitant]
     Active Substance: RAMIPRIL
     Indication: HYPERTENSION
     Dosage: 10 MG, QD
     Route: 065
     Dates: start: 1982
  8. SALBUTAMOL [Concomitant]
     Active Substance: ALBUTEROL
     Indication: ASTHMA
     Dosage: 0.1 MG, PRN
     Route: 065
     Dates: start: 2005
  9. VIGANTOLETTEN [Concomitant]
     Active Substance: CHOLECALCIFEROL
     Indication: OSTEOPENIA
     Dosage: 1000 IU, BID
     Route: 058
     Dates: start: 20150826
  10. LEVOTHYROXINE SODIUM. [Concomitant]
     Active Substance: LEVOTHYROXINE SODIUM
     Indication: HYPERTHYROIDISM
     Dosage: 50 MG, QD
     Route: 048
     Dates: start: 1982
  11. CETIRIZINE [Concomitant]
     Active Substance: CETIRIZINE HYDROCHLORIDE
     Indication: ATOPY
     Dosage: 10 MG, PRN
     Route: 065
     Dates: start: 2005
  12. METOPIRON [Suspect]
     Active Substance: METYRAPONE
     Indication: PRODUCT USED FOR UNKNOWN INDICATION
     Dosage: UNK
     Route: 065
  13. CLONIDINE. [Concomitant]
     Active Substance: CLONIDINE
     Indication: HYPERTENSION
     Dosage: 75 MG, QD
     Route: 065
     Dates: start: 2014
  14. POTASSIUM IODIDE. [Concomitant]
     Active Substance: POTASSIUM IODIDE
     Indication: HYPERTHYROIDISM
     Dosage: 150 MG, QD
     Route: 048
     Dates: start: 1982
  15. CLONIDINE. [Concomitant]
     Active Substance: CLONIDINE
     Dosage: 75 MG, BID
     Route: 065
     Dates: start: 20160322
  16. CLONIDINE. [Concomitant]
     Active Substance: CLONIDINE
     Dosage: 75 MG, QD
     Route: 065
     Dates: start: 2014, end: 20160321
  17. LERCANIDIPINE [Concomitant]
     Active Substance: LERCANIDIPINE
     Indication: HYPERTENSION
     Dosage: 20 MG, QD
     Route: 065
     Dates: start: 2010
  18. ALLOPURINOL. [Concomitant]
     Active Substance: ALLOPURINOL
     Indication: HYPERURICAEMIA
     Dosage: 300 MG, QD
     Route: 048
     Dates: start: 2004
  19. FERRO-SANOL DUODENAL [Concomitant]
     Active Substance: FERROUS GLYCINE SULFATE
     Indication: MENORRHAGIA
     Dosage: 50 MG, QD
     Route: 048
     Dates: start: 20160501
  20. SIGNIFOR [Suspect]
     Active Substance: PASIREOTIDE
     Indication: CARCINOID TUMOUR

REACTIONS (3)
  - Hypertrichosis [Unknown]
  - Adrenal insufficiency [Unknown]
  - Hypokalaemia [Recovered/Resolved]

NARRATIVE: CASE EVENT DATE: 20170713
